FAERS Safety Report 8379629-4 (Version None)
Quarter: 2012Q2

REPORT INFORMATION
  Report Type: 
  Country: None (occurrence: None)
  Receive Date: 20120523
  Receipt Date: 20120518
  Transmission Date: 20120825
  Serious: Yes (Death, Life-Threatening, Other)
  Sender: FDA-Public Use
  Company Number: PHHY2010JP72780

PATIENT
  Sex: Female

DRUGS (6)
  1. CEFAZOLIN SODIUM [Concomitant]
     Dosage: 03 DF, UNK
     Route: 048
     Dates: start: 20100325, end: 20100925
  2. COTRIM [Concomitant]
     Dosage: 01 DF, UNK
     Dates: start: 20100325, end: 20100925
  3. RED BLOOD CELLS, LEUCOCYTE DEPLETED [Concomitant]
     Dosage: 02 UNITS EVERY 02 WEEKS
     Dates: start: 20100927, end: 20110222
  4. RED BLOOD CELLS, LEUCOCYTE DEPLETED [Concomitant]
     Dosage: 02 UNITS EVERY 02 WEEKS
     Dates: start: 20100401, end: 20100913
  5. EXJADE [Suspect]
     Indication: MYELOFIBROSIS
     Dosage: 500 MG DAILY
     Route: 048
     Dates: start: 20100325, end: 20101215
  6. EXJADE [Suspect]
     Dosage: 500 MG DAILY
     Route: 048
     Dates: start: 20110111, end: 20110222

REACTIONS (10)
  - ALANINE AMINOTRANSFERASE INCREASED [None]
  - WHITE BLOOD CELL COUNT INCREASED [None]
  - PANCREATITIS ACUTE [None]
  - HAEMOGLOBIN DECREASED [None]
  - BLOOD LACTATE DEHYDROGENASE INCREASED [None]
  - ASPARTATE AMINOTRANSFERASE INCREASED [None]
  - NEOPLASM PROGRESSION [None]
  - SEPSIS [None]
  - BLOOD CREATININE INCREASED [None]
  - NEOPLASM MALIGNANT [None]
